FAERS Safety Report 4738985-6 (Version None)
Quarter: 2005Q3

REPORT INFORMATION
  Report Type: 
  Country: None (occurrence: None)
  Receive Date: 20050801
  Receipt Date: 20050518
  Transmission Date: 20060218
  Serious: Yes (Hospitalization)
  Sender: FDA-Public Use
  Company Number: 213678

PATIENT
  Age: 74 Year
  Sex: Male

DRUGS (3)
  1. RITUXAN [Suspect]
     Indication: CHRONIC LYMPHOCYTIC LEUKAEMIA
     Dates: start: 20040201
  2. FLUDARABINE PHOSPHATE [Suspect]
     Dates: start: 20040101
  3. CYCLOPHOSPHAMIDE [Suspect]
     Dates: start: 20040101

REACTIONS (1)
  - WHITE BLOOD CELL COUNT DECREASED [None]
